FAERS Safety Report 10621042 (Version 2)
Quarter: 2015Q1

REPORT INFORMATION
  Report Type: Report from Study
  Country: FR (occurrence: FR)
  Receive Date: 20141203
  Receipt Date: 20150106
  Transmission Date: 20150720
  Serious: Yes (Other)
  Sender: FDA-Public Use
  Company Number: FR-ROCHE-1497734

PATIENT

DRUGS (1)
  1. VEMURAFENIB [Suspect]
     Active Substance: VEMURAFENIB
     Indication: METASTATIC MALIGNANT MELANOMA
     Route: 065

REACTIONS (8)
  - Drug-induced liver injury [Recovered/Resolved]
  - Toxic skin eruption [Not Recovered/Not Resolved]
  - Squamous cell carcinoma [Unknown]
  - Palmoplantar keratoderma [Not Recovered/Not Resolved]
  - Arthralgia [Recovering/Resolving]
  - Asthenia [Recovering/Resolving]
  - Neuropathy peripheral [Not Recovered/Not Resolved]
  - Photosensitivity reaction [Recovering/Resolving]
